FAERS Safety Report 9928706 (Version 1)
Quarter: 2014Q1

REPORT INFORMATION
  Report Type: Spontaneous
  Country: AU (occurrence: None)
  Receive Date: 20140225
  Receipt Date: 20140225
  Transmission Date: 20141002
  Serious: Yes (Other)
  Sender: FDA-Public Use
  Company Number: 2013000513

PATIENT
  Age: 72 Year
  Sex: Female

DRUGS (3)
  1. ACEON (PERINDOPRIL ERBUMINE) TABLET [Suspect]
     Indication: PRODUCT USED FOR UNKNOWN INDICATION
  2. NATRILIX [Suspect]
     Indication: PRODUCT USED FOR UNKNOWN INDICATION
  3. EFFEXOR (VENLAFAXINE HYDROCHLORIDE) UNKNOWN [Suspect]
     Indication: PRODUCT USED FOR UNKNOWN INDICATION

REACTIONS (6)
  - Dehydration [None]
  - Inappropriate antidiuretic hormone secretion [None]
  - Confusional state [None]
  - Convulsion [None]
  - Headache [None]
  - Hyponatraemia [None]
